FAERS Safety Report 8500157-7 (Version None)
Quarter: 2012Q3

REPORT INFORMATION
  Report Type: 
  Country: None (occurrence: None)
  Receive Date: 20120710
  Receipt Date: 20120703
  Transmission Date: 20120928
  Serious: No
  Sender: FDA-Public Use
  Company Number: US-PFIZER INC-2012153157

PATIENT
  Sex: Male
  Weight: 90.703 kg

DRUGS (2)
  1. VIAGRA [Suspect]
     Dosage: 100 MG, UNK
     Route: 048
  2. VIAGRA [Suspect]
     Indication: ERECTILE DYSFUNCTION
     Dosage: 50 MG, DAILY
     Route: 048
     Dates: start: 20120601, end: 20120601

REACTIONS (1)
  - DRUG INEFFECTIVE [None]
